FAERS Safety Report 12401460 (Version 1)
Quarter: 2016Q2

REPORT INFORMATION
  Report Type: Spontaneous
  Country: US (occurrence: US)
  Receive Date: 20160525
  Receipt Date: 20160525
  Transmission Date: 20160815
  Serious: No
  Sender: FDA-Public Use
  Company Number: US-BIOGEN-2016BI00232506

PATIENT
  Sex: Female

DRUGS (1)
  1. TECFIDERA [Suspect]
     Active Substance: DIMETHYL FUMARATE
     Indication: MULTIPLE SCLEROSIS
     Dates: start: 20150305, end: 20160316

REACTIONS (5)
  - Dyspnoea [Unknown]
  - Choking sensation [Unknown]
  - Urticaria [Unknown]
  - Nasopharyngitis [Unknown]
  - Swelling face [Unknown]
